FAERS Safety Report 20701520 (Version 1)
Quarter: 2022Q2

REPORT INFORMATION
  Report Type: Spontaneous
  Country: US (occurrence: US)
  Receive Date: 20220412
  Receipt Date: 20220412
  Transmission Date: 20220721
  Serious: Yes (Hospitalization)
  Sender: FDA-Public Use
  Company Number: US-NOVARTISPH-NVSC2022US082322

PATIENT
  Age: 36 Year
  Sex: Male

DRUGS (20)
  1. AZITHROMYCIN [Suspect]
     Active Substance: AZITHROMYCIN
     Indication: Babesiosis
     Dosage: 500 MG, ONCE/SINGLE
     Route: 042
     Dates: start: 20190109
  2. AZITHROMYCIN [Suspect]
     Active Substance: AZITHROMYCIN
     Dosage: 500 MG, QD
     Route: 048
  3. AZITHROMYCIN [Suspect]
     Active Substance: AZITHROMYCIN
     Dosage: 250 MG, QD
     Route: 048
  4. AZITHROMYCIN [Suspect]
     Active Substance: AZITHROMYCIN
     Dosage: 500 MG, QD
     Route: 048
     Dates: start: 20190329
  5. AZITHROMYCIN [Suspect]
     Active Substance: AZITHROMYCIN
     Dosage: 500 MG, QD
     Route: 048
     Dates: start: 20190828
  6. AZITHROMYCIN [Suspect]
     Active Substance: AZITHROMYCIN
     Dosage: 500 MG, QD
     Route: 048
     Dates: start: 20190917
  7. AZITHROMYCIN [Suspect]
     Active Substance: AZITHROMYCIN
     Dosage: 500 MG, QD
     Route: 048
     Dates: start: 20191001, end: 20191114
  8. AZITHROMYCIN [Suspect]
     Active Substance: AZITHROMYCIN
     Dosage: 500 MG, QD
     Route: 048
     Dates: start: 20191213, end: 20200128
  9. AZITHROMYCIN [Suspect]
     Active Substance: AZITHROMYCIN
     Dosage: 1000 MG, QD
     Route: 048
     Dates: start: 20200129
  10. CLINDAMYCIN [Suspect]
     Active Substance: CLINDAMYCIN
     Indication: Babesiosis
     Dosage: 300 MG, TID
     Route: 048
     Dates: start: 20190917
  11. CLINDAMYCIN [Suspect]
     Active Substance: CLINDAMYCIN
     Dosage: 450 MG, TID
     Route: 048
     Dates: start: 20200129
  12. ATOVAQUONE [Suspect]
     Active Substance: ATOVAQUONE
     Indication: Babesiosis
     Dosage: 750 MG, QD (LIQUID SUSPENSION)
     Route: 048
     Dates: start: 20190109
  13. ATOVAQUONE [Suspect]
     Active Substance: ATOVAQUONE
     Dosage: 750 MG, BID (LIQUID SUSPENSION)
     Route: 048
     Dates: start: 20190329
  14. ATOVAQUONE [Suspect]
     Active Substance: ATOVAQUONE
     Dosage: 750 MG, BID (LIQUID SUSPENSION)
     Route: 048
     Dates: start: 20190828
  15. ATOVAQUONE [Suspect]
     Active Substance: ATOVAQUONE
     Dosage: 750 MG, BID (LIQUID SUSPENSION)
     Route: 048
     Dates: start: 20190917
  16. ATOVAQUONE [Suspect]
     Active Substance: ATOVAQUONE
     Dosage: 750 MG, QD (LIQUID SUSPENSION)
     Route: 048
     Dates: start: 20191001, end: 20191114
  17. ATOVAQUONE [Suspect]
     Active Substance: ATOVAQUONE
     Dosage: 750 MG, BID (LIQUID SUSPENSION)
     Route: 048
     Dates: start: 20191213, end: 20200128
  18. ATOVAQUONE [Suspect]
     Active Substance: ATOVAQUONE
     Dosage: 750 MG, QD (LIQUID SUSPENSION)
     Route: 048
     Dates: start: 20200129
  19. MALARONE [Suspect]
     Active Substance: ATOVAQUONE\PROGUANIL HYDROCHLORIDE
     Indication: Babesiosis
     Dosage: 4 DOSAGE FORM, QD
     Route: 048
     Dates: start: 20200129
  20. PREDNISONE [Concomitant]
     Active Substance: PREDNISONE
     Indication: Granulomatosis with polyangiitis
     Dosage: 7.5 MG, QD
     Route: 065

REACTIONS (7)
  - Babesiosis [Recovered/Resolved]
  - Babesiosis [Recovered/Resolved]
  - Babesiosis [Recovered/Resolved]
  - Nausea [Unknown]
  - Diarrhoea [Unknown]
  - Drug resistance [Unknown]
  - Product use in unapproved indication [Unknown]
